FAERS Safety Report 14330270 (Version 1)
Quarter: 2017Q4

REPORT INFORMATION
  Report Type: Spontaneous
  Country: ES (occurrence: ES)
  Receive Date: 20171227
  Receipt Date: 20171227
  Transmission Date: 20180321
  Serious: Yes (Other)
  Sender: FDA-Public Use
  Company Number: ES-BAUSCH-BL-2017-034861

PATIENT
  Age: 73 Year
  Sex: Female
  Weight: 68 kg

DRUGS (1)
  1. DEXAMETASONA (722A) [Suspect]
     Active Substance: DEXAMETHASONE
     Indication: BACK PAIN
     Route: 030
     Dates: start: 20171101, end: 20171103

REACTIONS (2)
  - Neutrophilia [Recovered/Resolved]
  - Leukocytosis [Recovered/Resolved]

NARRATIVE: CASE EVENT DATE: 20171108
